APPROVED DRUG PRODUCT: CEFPODOXIME PROXETIL
Active Ingredient: CEFPODOXIME PROXETIL
Strength: EQ 50MG BASE/5ML
Dosage Form/Route: FOR SUSPENSION;ORAL
Application: A090031 | Product #001
Applicant: CHARTWELL RX SCIENCES LLC
Approved: Jan 14, 2009 | RLD: No | RS: No | Type: DISCN